FAERS Safety Report 4463751-9 (Version None)
Quarter: 2004Q3

REPORT INFORMATION
  Report Type: 
  Country: None (occurrence: None)
  Receive Date: 20040929
  Receipt Date: 20040920
  Transmission Date: 20050211
  Serious: Yes (Other)
  Sender: FDA-Public Use
  Company Number: 2004-08-1056

PATIENT
  Age: 9 Year
  Sex: Male

DRUGS (3)
  1. NASONEX [Suspect]
     Indication: RHINITIS
     Dosage: NASAL SPRAY
     Route: 045
     Dates: start: 20040701, end: 20040801
  2. NASONEX [Suspect]
     Indication: RHINITIS
     Dosage: NASAL SPRAY
     Route: 045
     Dates: start: 20040801, end: 20040801
  3. NASONEX [Suspect]
     Indication: RHINITIS
     Dosage: NASAL SPRAY
     Route: 045
     Dates: start: 20040701

REACTIONS (5)
  - CHEILITIS [None]
  - DYSPHONIA [None]
  - GLOSSITIS [None]
  - GLOSSODYNIA [None]
  - SALIVARY HYPERSECRETION [None]
